FAERS Safety Report 8462562-7 (Version None)
Quarter: 2012Q2

REPORT INFORMATION
  Report Type: 
  Country: None (occurrence: None)
  Receive Date: 20120625
  Receipt Date: 20120615
  Transmission Date: 20120825
  Serious: Yes (Other)
  Sender: FDA-Public Use
  Company Number: US-ASTRAZENECA-2012SE40733

PATIENT
  Age: 62 Year
  Sex: Male

DRUGS (1)
  1. NEXIUM [Suspect]
     Route: 048

REACTIONS (6)
  - DRUG DOSE OMISSION [None]
  - HAEMATEMESIS [None]
  - COUGH [None]
  - OFF LABEL USE [None]
  - OESOPHAGEAL ULCER [None]
  - GASTROINTESTINAL HAEMORRHAGE [None]
